FAERS Safety Report 23200834 (Version 2)
Quarter: 2023Q4

REPORT INFORMATION
  Report Type: Report from Study
  Country: US (occurrence: US)
  Receive Date: 20231118
  Receipt Date: 20231227
  Transmission Date: 20240110
  Serious: Yes (Death, Hospitalization, Other)
  Sender: FDA-Public Use
  Company Number: US-ALXN-A202303352AA

PATIENT
  Age: 38 Year
  Sex: Female
  Weight: 50.3 kg

DRUGS (1)
  1. SOLIRIS [Suspect]
     Active Substance: ECULIZUMAB
     Indication: Malignant atrophic papulosis
     Dosage: 900 MILLIGRAM, Q2W
     Route: 042
     Dates: start: 20230228

REACTIONS (5)
  - Cardiac arrest [Fatal]
  - Respiratory failure [Fatal]
  - Pneumonia [Fatal]
  - Pleural effusion [Unknown]
  - Off label use [Unknown]

NARRATIVE: CASE EVENT DATE: 20230705
